FAERS Safety Report 12691481 (Version 3)
Quarter: 2016Q3

REPORT INFORMATION
  Report Type: Spontaneous
  Country: RO (occurrence: RO)
  Receive Date: 20160826
  Receipt Date: 20160909
  Transmission Date: 20161109
  Serious: Yes (Life-Threatening, Hospitalization)
  Sender: FDA-Public Use
  Company Number: RO-ABBVIE-16P-135-1711726-00

PATIENT
  Age: 59 Year
  Sex: Female

DRUGS (2)
  1. LIPANTHYL SUPRA 160MG [Suspect]
     Active Substance: FENOFIBRATE
     Indication: DRUG PROVOCATION TEST
     Dosage: 3/4 TABLET
     Route: 048
     Dates: start: 20160601, end: 20160601
  2. LIPANTHYL SUPRA 160MG [Suspect]
     Active Substance: FENOFIBRATE
     Indication: HYPERTRIGLYCERIDAEMIA
     Route: 048
     Dates: start: 20160501, end: 20160512

REACTIONS (4)
  - Cough [Recovered/Resolved]
  - Throat irritation [Recovered/Resolved]
  - Angioedema [Recovered/Resolved]
  - Dysphagia [Recovered/Resolved]

NARRATIVE: CASE EVENT DATE: 20160512
